FAERS Safety Report 6313847-1 (Version None)
Quarter: 2009Q3

REPORT INFORMATION
  Report Type: 
  Country: None (occurrence: None)
  Receive Date: 20090817
  Receipt Date: 20090817
  Transmission Date: 20100115
  Serious: Yes (Life-Threatening, Hospitalization)
  Sender: FDA-Public Use
  Company Number: None

PATIENT
  Age: 22 Year
  Sex: Female
  Weight: 59.8748 kg

DRUGS (4)
  1. YAZ [Suspect]
     Indication: ABDOMINAL PAIN
     Dosage: 3 MG/0.02 MG 1 TABLET A DAY PO
     Route: 048
     Dates: start: 20080603, end: 20080803
  2. YAZ [Suspect]
     Indication: NAUSEA
     Dosage: 3 MG/0.02 MG 1 TABLET A DAY PO
     Route: 048
     Dates: start: 20080603, end: 20080803
  3. YAZ [Suspect]
     Indication: ABDOMINAL PAIN
     Dosage: 3 MG/0.02 MG 1 TABLET A DAY PO
     Route: 048
     Dates: start: 20081206, end: 20090724
  4. YAZ [Suspect]
     Indication: NAUSEA
     Dosage: 3 MG/0.02 MG 1 TABLET A DAY PO
     Route: 048
     Dates: start: 20081206, end: 20090724

REACTIONS (4)
  - HYPOXIA [None]
  - PERICARDITIS [None]
  - PLEURISY [None]
  - PULMONARY THROMBOSIS [None]
